FAERS Safety Report 16429991 (Version 1)
Quarter: 2019Q2

REPORT INFORMATION
  Report Type: Spontaneous
  Country: US (occurrence: US)
  Receive Date: 20190507
  Receipt Date: 20190507
  Transmission Date: 20190711
  Serious: No
  Sender: FDA-Public Use
  Company Number: None

PATIENT
  Sex: Female

DRUGS (2)
  1. CAPECITABINE. [Suspect]
     Active Substance: CAPECITABINE
     Indication: BREAST CANCER FEMALE
     Dosage: ?          OTHER DOSE:TWO TABLETS;?
     Route: 048
     Dates: start: 20190305, end: 20190501
  2. CAPECITABINE ++ 500MG ROXANE [Suspect]
     Active Substance: CAPECITABINE
     Dosage: ?          OTHER DOSE:4 TABLETS;?
     Route: 048
     Dates: start: 20190305, end: 20190501

REACTIONS (3)
  - Swelling [None]
  - Erythema [None]
  - Gait inability [None]
